FAERS Safety Report 26048076 (Version 2)
Quarter: 2025Q4

REPORT INFORMATION
  Report Type: Spontaneous
  Country: US (occurrence: US)
  Receive Date: 20251114
  Receipt Date: 20251204
  Transmission Date: 20260118
  Serious: Yes (Other)
  Sender: AURINIA PHARMACEUTICALS
  Company Number: US-AURINIA PHARMACEUTICALS INC.-AUR-010355

PATIENT
  Age: 42 Year
  Sex: Female

DRUGS (4)
  1. LUPKYNIS [Suspect]
     Active Substance: VOCLOSPORIN
     Indication: Lupus nephritis
     Dosage: UNKNOWN IF PATIENT WAS TAKING DURING ADVERSE EVENT; PREVIOUS DOSE WAS 23.7MG BY MOUTH TWICE DAILY
  2. LUPKYNIS [Suspect]
     Active Substance: VOCLOSPORIN
     Dosage: 23.7 MILLIGRAM, BID
     Dates: start: 20230209
  3. LUPKYNIS [Suspect]
     Active Substance: VOCLOSPORIN
     Dosage: UNK
  4. MYFORTIC [Suspect]
     Active Substance: MYCOPHENOLATE SODIUM
     Indication: Product used for unknown indication

REACTIONS (14)
  - Deep vein thrombosis [Unknown]
  - Systemic lupus erythematosus [Unknown]
  - Renal-limited thrombotic microangiopathy [Unknown]
  - Urine protein/creatinine ratio increased [Unknown]
  - Blood creatinine increased [Not Recovered/Not Resolved]
  - Complement factor C3 decreased [Unknown]
  - Beta-2 glycoprotein antibody positive [Unknown]
  - Cardiolipin antibody positive [Unknown]
  - Peripheral swelling [Unknown]
  - Fatigue [Unknown]
  - Glomerular filtration rate decreased [Unknown]
  - Proteinuria [Unknown]
  - Hypertension [Unknown]
  - Treatment noncompliance [Unknown]

NARRATIVE: CASE EVENT DATE: 20251001
